FAERS Safety Report 11592076 (Version 2)
Quarter: 2016Q1

REPORT INFORMATION
  Report Type: Spontaneous
  Country: US (occurrence: US)
  Receive Date: 20151005
  Receipt Date: 20160106
  Transmission Date: 20160525
  Serious: No
  Sender: FDA-Public Use
  Company Number: US-PFIZER INC-2015329926

PATIENT
  Age: 59 Year
  Sex: Female
  Weight: 93 kg

DRUGS (16)
  1. ORPHENADRINE [Suspect]
     Active Substance: ORPHENADRINE
     Dosage: 100 MG, 2X/DAY
     Dates: start: 2008
  2. ATENOLOL. [Concomitant]
     Active Substance: ATENOLOL
     Indication: HYPERTENSION
     Dosage: 100 MG, 1X/DAY
     Dates: start: 2005
  3. PROZAC [Concomitant]
     Active Substance: FLUOXETINE HYDROCHLORIDE
     Dosage: 40 MG, 1X/DAY
     Dates: start: 1989
  4. LYRICA [Suspect]
     Active Substance: PREGABALIN
     Indication: INTRACRANIAL PRESSURE INCREASED
     Dosage: 50 MG, 1X/DAY
     Dates: start: 2008, end: 201509
  5. LYRICA [Suspect]
     Active Substance: PREGABALIN
     Indication: NEUROPATHY PERIPHERAL
  6. VERAPAMIL [Concomitant]
     Active Substance: VERAPAMIL HYDROCHLORIDE
     Indication: HYPERTENSION
     Dosage: 300 MG, 1X/DAY
     Dates: start: 2014
  7. WELLBUTRIN [Concomitant]
     Active Substance: BUPROPION HYDROCHLORIDE
     Dosage: 300 MG, 1X/DAY
     Dates: start: 2015
  8. POTASSIUM CHLORIDE. [Suspect]
     Active Substance: POTASSIUM CHLORIDE
     Indication: INTRACRANIAL PRESSURE INCREASED
     Dosage: 10 MEQ, 3X/DAY
     Dates: start: 2009
  9. ORPHENADRINE [Suspect]
     Active Substance: ORPHENADRINE
     Indication: INTRACRANIAL PRESSURE INCREASED
     Dosage: 100 MG, 1X/DAY
  10. LASIX [Suspect]
     Active Substance: FUROSEMIDE
     Indication: INTRACRANIAL PRESSURE INCREASED
     Dosage: 20 MG, 3X/DAY
  11. LYRICA [Suspect]
     Active Substance: PREGABALIN
     Indication: EYE PAIN
  12. LASIX [Suspect]
     Active Substance: FUROSEMIDE
     Dosage: 40 MG, 3X/DAY
     Dates: start: 200909
  13. LISINOPRIL. [Concomitant]
     Active Substance: LISINOPRIL
     Indication: HYPERTENSION
     Dosage: 40 MG, 1X/DAY
     Dates: start: 2015
  14. GUANFACINE. [Concomitant]
     Active Substance: GUANFACINE
     Indication: HYPERTENSION
     Dosage: 1 MG, 1X/DAY
     Dates: start: 2014
  15. METFORMIN [Concomitant]
     Active Substance: METFORMIN HYDROCHLORIDE
     Dosage: 1000 MG, 2X/DAY
     Dates: start: 2013
  16. METHAZOLAMIDE. [Suspect]
     Active Substance: METHAZOLAMIDE
     Indication: INTRACRANIAL PRESSURE INCREASED
     Dosage: 50 MG, 2X/DAY
     Dates: start: 2009

REACTIONS (1)
  - Drug ineffective [Not Recovered/Not Resolved]

NARRATIVE: CASE EVENT DATE: 200809
